FAERS Safety Report 5353774-X (Version None)
Quarter: 2007Q2

REPORT INFORMATION
  Report Type: 
  Country: None (occurrence: None)
  Receive Date: 20070608
  Receipt Date: 20070608
  Transmission Date: 20071010
  Serious: Yes (Hospitalization)
  Sender: FDA-Public Use
  Company Number: None

PATIENT
  Sex: Male
  Weight: 86.1834 kg

DRUGS (2)
  1. HEPARIN [Suspect]
     Indication: AORTIC ANEURYSM REPAIR
     Dosage: 25,000 UNITS ONCE IV BOLUS
     Route: 040
     Dates: start: 20070501, end: 20070501
  2. LOVENOX [Suspect]
     Indication: THROMBOSIS PROPHYLAXIS
     Dosage: 40 MG DAILY SQ
     Route: 058
     Dates: start: 20070502, end: 20070508

REACTIONS (2)
  - HEPARIN-INDUCED THROMBOCYTOPENIA [None]
  - VENOUS THROMBOSIS [None]
